FAERS Safety Report 8179198-8 (Version None)
Quarter: 2012Q1

REPORT INFORMATION
  Report Type: 
  Country: None (occurrence: None)
  Receive Date: 20120227
  Receipt Date: 20120216
  Transmission Date: 20120608
  Serious: Yes (Death)
  Sender: FDA-Public Use
  Company Number: 1093938

PATIENT
  Age: 80 Year
  Sex: Female

DRUGS (3)
  1. CARBOPLATIN [Suspect]
     Indication: OVARIAN CANCER
     Dosage: 500 MG, CYCLIC, INTRAVENOUS
     Route: 042
     Dates: start: 20111012, end: 20111012
  2. ONDANSETRON [Concomitant]
  3. DEXAMETHASONE [Concomitant]

REACTIONS (5)
  - CARDIO-RESPIRATORY ARREST [None]
  - FLUSHING [None]
  - DYSPNOEA [None]
  - SYNCOPE [None]
  - MALAISE [None]
